FAERS Safety Report 16570672 (Version 1)
Quarter: 2019Q3

REPORT INFORMATION
  Report Type: Spontaneous
  Country: US (occurrence: US)
  Receive Date: 20190715
  Receipt Date: 20190715
  Transmission Date: 20191004
  Serious: Yes (Death, Other)
  Sender: FDA-Public Use
  Company Number: US-HORIZON-PRE-0305-2019

PATIENT
  Age: 67 Year
  Sex: Female

DRUGS (3)
  1. TACROLIMUS. [Suspect]
     Active Substance: TACROLIMUS
     Indication: IMMUNOSUPPRESSION
  2. CEFTRIAXONE. [Concomitant]
     Active Substance: CEFTRIAXONE
     Indication: ANTIBIOTIC PROPHYLAXIS
  3. PREDNISONE. [Suspect]
     Active Substance: PREDNISONE
     Indication: IMMUNOSUPPRESSION

REACTIONS (6)
  - Clostridial infection [Not Recovered/Not Resolved]
  - Liver abscess [Not Recovered/Not Resolved]
  - Septic shock [Fatal]
  - Multiple organ dysfunction syndrome [Fatal]
  - Escherichia infection [Not Recovered/Not Resolved]
  - Cholangitis [Not Recovered/Not Resolved]
